FAERS Safety Report 9370681 (Version 3)
Quarter: 2013Q3

REPORT INFORMATION
  Report Type: Spontaneous
  Country: DE (occurrence: CA)
  Receive Date: 20130626
  Receipt Date: 20130726
  Transmission Date: 20140515
  Serious: Yes (Hospitalization)
  Sender: FDA-Public Use
  Company Number: CA-FRI-1000046190

PATIENT
  Sex: Female
  Weight: 103 kg

DRUGS (3)
  1. ROFLUMILAST [Suspect]
     Indication: CHRONIC OBSTRUCTIVE PULMONARY DISEASE
     Dosage: 1 DF
     Dates: start: 201305, end: 2013
  2. SPIRIVA [Concomitant]
     Dosage: 18 MG
  3. ADVAIR [Concomitant]
     Dosage: 250 MG

REACTIONS (5)
  - Sensory loss [Recovering/Resolving]
  - Feeling abnormal [Recovering/Resolving]
  - Aphagia [Recovered/Resolved]
  - Decreased appetite [Recovering/Resolving]
  - Sleep disorder [Recovered/Resolved]
